FAERS Safety Report 8964457 (Version 1)
Quarter: 2012Q4

REPORT INFORMATION
  Report Type: 
  Country: US (occurrence: US)
  Receive Date: 20121214
  Receipt Date: 20121214
  Transmission Date: 20130627
  Serious: No
  Sender: FDA-Public Use
  Company Number: US-GLAXOSMITHKLINE-A0993668A

PATIENT
  Age: 53 Year
  Sex: Male

DRUGS (2)
  1. AVODART [Suspect]
     Indication: ALOPECIA
     Dosage: 1CAP Per day
     Route: 048
     Dates: start: 20120905, end: 20120908
  2. NO CONCURRENT MEDICATION [Concomitant]

REACTIONS (7)
  - Fatigue [Recovered/Resolved]
  - Dizziness [Recovered/Resolved]
  - Erectile dysfunction [Unknown]
  - Blood testosterone increased [Unknown]
  - Off label use [Unknown]
  - Alopecia [Unknown]
  - Nausea [Recovered/Resolved]
